FAERS Safety Report 5228261-X (Version None)
Quarter: 2007Q1

REPORT INFORMATION
  Report Type: 
  Country: None (occurrence: None)
  Receive Date: 20070130
  Receipt Date: 20070116
  Transmission Date: 20070707
  Serious: Yes (Other)
  Sender: FDA-Public Use
  Company Number: 2006PV026186

PATIENT
  Age: 44 Year
  Sex: Female
  Weight: 108.8633 kg

DRUGS (8)
  1. BYETTA [Suspect]
     Indication: DIABETES MELLITUS NON-INSULIN-DEPENDENT
     Dosage: SEE IMAGE
     Route: 058
     Dates: start: 20060905, end: 20061004
  2. BYETTA [Suspect]
     Indication: DIABETES MELLITUS NON-INSULIN-DEPENDENT
     Dosage: SEE IMAGE
     Route: 058
     Dates: start: 20061005, end: 20070101
  3. COZAAR [Concomitant]
  4. VERAPAMIL [Concomitant]
  5. ZOCOR [Concomitant]
  6. GLUCOTROL [Concomitant]
  7. AVANDIA [Concomitant]
  8. METFORMIN HCL [Concomitant]

REACTIONS (9)
  - BLOOD GLUCOSE INCREASED [None]
  - BRONCHITIS [None]
  - DECREASED APPETITE [None]
  - DIZZINESS [None]
  - FALL [None]
  - INCORRECT DOSE ADMINISTERED [None]
  - LOSS OF CONSCIOUSNESS [None]
  - MEMORY IMPAIRMENT [None]
  - NASOPHARYNGITIS [None]
